FAERS Safety Report 23210859 (Version 3)
Quarter: 2025Q4

REPORT INFORMATION
  Report Type: Spontaneous
  Country: EU (occurrence: EU)
  Receive Date: 20231121
  Receipt Date: 20251114
  Transmission Date: 20260118
  Serious: Yes (Disabling)
  Sender: PFIZER
  Company Number: EU-002147023-NVSC2023GR236038

PATIENT
  Age: 43 Year
  Sex: Female

DRUGS (5)
  1. METHOTREXATE SODIUM [Suspect]
     Active Substance: METHOTREXATE SODIUM
     Indication: Spondylitis
     Dosage: 4 DOSAGE FORM, QW (4 PILLS OF 2,5MG) (STARTED: 4 YEARS AGO)
     Route: 065
     Dates: start: 2021
  2. METHOTREXATE SODIUM [Suspect]
     Active Substance: METHOTREXATE SODIUM
     Indication: Psoriatic arthropathy
  3. COSENTYX [Suspect]
     Active Substance: SECUKINUMAB
     Indication: Psoriatic arthropathy
     Dosage: STARTED 2 YEARS AGO
     Dates: start: 2023
  4. COSENTYX [Suspect]
     Active Substance: SECUKINUMAB
     Indication: Spondylitis
  5. CYMBALTA [Concomitant]
     Active Substance: DULOXETINE HYDROCHLORIDE
     Indication: Fibromyalgia
     Dosage: UNK

REACTIONS (7)
  - Gait disturbance [Recovered/Resolved]
  - Bone pain [Recovered/Resolved]
  - Myalgia [Recovered/Resolved]
  - Fatigue [Recovered/Resolved]
  - Asthenia [Recovered/Resolved]
  - Menstruation delayed [Recovered/Resolved]
  - Off label use [Unknown]
